FAERS Safety Report 22380549 (Version 1)
Quarter: 2023Q2

REPORT INFORMATION
  Report Type: Spontaneous
  Country: CA (occurrence: CA)
  Receive Date: 20230529
  Receipt Date: 20230529
  Transmission Date: 20230722
  Serious: Yes (Hospitalization, Other)
  Sender: FDA-Public Use
  Company Number: CA-HLS-202301132

PATIENT
  Age: 36 Year
  Sex: Female
  Weight: 100 kg

DRUGS (8)
  1. ATIVAN [Concomitant]
     Active Substance: LORAZEPAM
     Dosage: 1 EVERY 1 DAYS?AMOUNT: 1 MILLIGRAM?NOT SPECIFIED DOSAGE FORM
     Route: 065
  2. CLOZAPINE [Suspect]
     Active Substance: CLOZAPINE
     Indication: Psychotic disorder
     Dosage: TABLETS DOSAGE FORM
     Route: 065
  3. CLOZAPINE [Suspect]
     Active Substance: CLOZAPINE
     Indication: Psychotic disorder
     Dosage: THERAPY DURATION: 22 DAYS
     Route: 065
  4. LITHIUM [Concomitant]
     Active Substance: LITHIUM
     Dosage: AMOUNT: 900 MILLIGRAM
     Route: 065
  5. QUETIAPINE FUMARATE [Concomitant]
     Active Substance: QUETIAPINE FUMARATE
     Dosage: AMOUNT: 300 MILLIGRAM
     Route: 065
  6. VITAMIN B1 [Concomitant]
     Active Substance: THIAMINE HYDROCHLORIDE
     Route: 065
  7. VITAMIN B12 [Concomitant]
     Active Substance: CYANOCOBALAMIN
     Dosage: NOT SPECIFIED DOSAGE FORM
     Route: 065
  8. ZIPRASIDONE [Concomitant]
     Active Substance: ZIPRASIDONE
     Route: 065

REACTIONS (4)
  - C-reactive protein increased [Unknown]
  - Fatigue [Unknown]
  - Myocarditis [Unknown]
  - Troponin increased [Unknown]
